FAERS Safety Report 5487780-1 (Version None)
Quarter: 2007Q3

REPORT INFORMATION
  Report Type: 
  Country: None (occurrence: None)
  Receive Date: 20070925
  Receipt Date: 20070807
  Transmission Date: 20080115
  Serious: No
  Sender: FDA-Public Use
  Company Number: 2007US001854

PATIENT
  Age: 73 Year
  Sex: Female

DRUGS (6)
  1. VESICARE [Suspect]
     Indication: HYPERTONIC BLADDER
     Dosage: ORAL
     Route: 048
  2. CELEBREX [Concomitant]
  3. GLUCOSAMINE (COD-LIVER OIL) [Concomitant]
  4. SYNTHROID [Concomitant]
  5. ANTIHYPERTENSIVES [Concomitant]
  6. THIMARA [Concomitant]

REACTIONS (3)
  - ARTHROPATHY [None]
  - NOCTURIA [None]
  - POLLAKIURIA [None]
